FAERS Safety Report 7415794-0 (Version None)
Quarter: 2011Q2

REPORT INFORMATION
  Report Type: 
  Country: None (occurrence: None)
  Receive Date: 20110414
  Receipt Date: 20110405
  Transmission Date: 20111010
  Serious: Yes (Hospitalization)
  Sender: FDA-Public Use
  Company Number: CA-ASTRAZENECA-2011SE19360

PATIENT
  Age: 66 Year
  Sex: Female

DRUGS (1)
  1. SYMBICORT [Suspect]
     Indication: ASTHMA
     Dosage: 400 MCG, TWO TIMES A DAY
     Route: 055
     Dates: start: 20110331, end: 20110331

REACTIONS (7)
  - BLOOD PRESSURE INCREASED [None]
  - INFLUENZA LIKE ILLNESS [None]
  - INSOMNIA [None]
  - FATIGUE [None]
  - IMPAIRED DRIVING ABILITY [None]
  - CHEST PAIN [None]
  - DIZZINESS [None]
